FAERS Safety Report 13930286 (Version 3)
Quarter: 2018Q4

REPORT INFORMATION
  Report Type: Report from Study
  Country: KR (occurrence: KR)
  Receive Date: 20170901
  Receipt Date: 20181113
  Transmission Date: 20190204
  Serious: Yes (Hospitalization)
  Sender: FDA-Public Use
  Company Number: KR-TAKEDA-2017TUS018250

PATIENT
  Age: 57 Year
  Sex: Female
  Weight: 76.8 kg

DRUGS (9)
  1. VORTIOXETINE. [Suspect]
     Active Substance: VORTIOXETINE
     Indication: MAJOR DEPRESSION
     Dosage: 5 MG, QD
     Route: 048
     Dates: start: 20160720, end: 20160911
  2. CEFUROXIME. [Concomitant]
     Active Substance: CEFUROXIME
     Indication: OVARIAN CANCER
     Dosage: 500 MG, UNK
     Route: 048
     Dates: start: 20160720, end: 20160809
  3. FAMOTIDINE. [Concomitant]
     Active Substance: FAMOTIDINE
     Indication: OVARIAN CANCER
     Dosage: 40 MG, UNK
     Route: 048
     Dates: start: 20151001
  4. GABAPENTIN. [Concomitant]
     Active Substance: GABAPENTIN
     Indication: OVARIAN CANCER
     Dosage: 1200 MG, UNK
     Route: 048
     Dates: start: 20160217, end: 20161117
  5. TRAMADOL/ACETAMINOPHEN [Concomitant]
     Active Substance: ACETAMINOPHEN\TRAMADOL
     Indication: OVARIAN CANCER
     Dosage: 150/1300MG, UNK
     Route: 048
     Dates: start: 20151106
  6. CLONAZEPAM. [Concomitant]
     Active Substance: CLONAZEPAM
     Indication: MAJOR DEPRESSION
     Dosage: 0.5 MG, UNK
     Route: 048
     Dates: start: 20160525
  7. ESCITALOPRAM [Concomitant]
     Active Substance: ESCITALOPRAM OXALATE
     Indication: MAJOR DEPRESSION
     Dosage: 10 MG, UNK
     Route: 048
     Dates: start: 20150213
  8. ATORVASTATIN [Concomitant]
     Active Substance: ATORVASTATIN
     Indication: DYSLIPIDAEMIA
     Dosage: 10 MG, UNK
     Route: 048
     Dates: start: 20140327
  9. ETIZOLAM [Concomitant]
     Active Substance: ETIZOLAM
     Indication: MAJOR DEPRESSION
     Dosage: 1 MG, UNK
     Route: 048
     Dates: start: 20150213

REACTIONS (2)
  - Nausea [Recovered/Resolved]
  - Urinary tract infection [Recovered/Resolved]

NARRATIVE: CASE EVENT DATE: 20160912
